FAERS Safety Report 20098952 (Version 1)
Quarter: 2021Q4

REPORT INFORMATION
  Report Type: Spontaneous
  Country: PT (occurrence: PT)
  Receive Date: 20211122
  Receipt Date: 20211122
  Transmission Date: 20220303
  Serious: Yes (Hospitalization)
  Sender: FDA-Public Use
  Company Number: PT-MYLANLABS-2021M1086645

PATIENT
  Age: 65 Year
  Sex: Male

DRUGS (2)
  1. IBUPROFEN [Suspect]
     Active Substance: IBUPROFEN
     Indication: Product used for unknown indication
     Dosage: 4 GRAM
     Route: 048
  2. ACETAMINOPHEN [Suspect]
     Active Substance: ACETAMINOPHEN
     Indication: Product used for unknown indication
     Dosage: 8 GRAM
     Route: 048

REACTIONS (4)
  - Suicide attempt [Unknown]
  - Intentional overdose [Unknown]
  - Oesophagitis chemical [Unknown]
  - Acid base balance abnormal [Unknown]
